FAERS Safety Report 7039854-1 (Version None)
Quarter: 2010Q4

REPORT INFORMATION
  Report Type: 
  Country: None (occurrence: None)
  Receive Date: 20101012
  Receipt Date: 20101001
  Transmission Date: 20110411
  Serious: Yes (Other)
  Sender: FDA-Public Use
  Company Number: AT-BAXTER-2010BH024935

PATIENT
  Age: 79 Year
  Sex: Male
  Weight: 70 kg

DRUGS (14)
  1. GAMMAGARD LIQUID [Suspect]
     Indication: PRODUCT USED FOR UNKNOWN INDICATION
     Route: 042
     Dates: start: 20100925, end: 20100925
  2. CIPROXINE [Concomitant]
  3. CONCOR COR [Concomitant]
  4. EZETROL [Concomitant]
  5. LASIX [Concomitant]
  6. LOVENOX [Concomitant]
  7. ESOMEPRAZOLE [Concomitant]
  8. NOVONORM [Concomitant]
  9. ASPIRIN [Concomitant]
  10. TRAMABENE [Concomitant]
  11. VICARD [Concomitant]
  12. AMLODIPINE [Concomitant]
  13. GABAPENTIN [Concomitant]
  14. SIMVASTATIN [Concomitant]

REACTIONS (4)
  - ABDOMINAL PAIN [None]
  - BACK PAIN [None]
  - CHILLS [None]
  - PYREXIA [None]
